FAERS Safety Report 5051283-9 (Version None)
Quarter: 2006Q3

REPORT INFORMATION
  Report Type: 
  Country: None (occurrence: None)
  Receive Date: 20060714
  Receipt Date: 20051212
  Transmission Date: 20061208
  Serious: Yes (Other)
  Sender: FDA-Public Use
  Company Number: BR-AVENTIS-200521109GDDC

PATIENT
  Age: 57 Year
  Sex: Female

DRUGS (7)
  1. ARAVA [Suspect]
     Indication: RHEUMATOID ARTHRITIS
     Route: 048
     Dates: start: 20010126, end: 20030701
  2. ARAVA [Suspect]
     Route: 048
     Dates: start: 20030701, end: 20051123
  3. ARAVA [Suspect]
     Route: 048
     Dates: start: 20060201
  4. MELOXICAM [Concomitant]
     Indication: RHEUMATOID ARTHRITIS
     Route: 048
     Dates: start: 20010306
  5. AMITRIPTYLINE HCL [Concomitant]
     Indication: RHEUMATOID ARTHRITIS
     Route: 048
     Dates: start: 20010306
  6. FOLIC ACID [Concomitant]
     Route: 048
     Dates: start: 20010126
  7. COMBINATIONS OF ANTIHYPERTENSIVES IN ATC-GR. [Concomitant]
     Indication: HYPERTENSION
     Dosage: DOSE: 50/125
     Route: 048

REACTIONS (5)
  - PLEURAL EFFUSION [None]
  - PNEUMONIA BACTERIAL [None]
  - RHEUMATOID NODULE [None]
  - TREATMENT NONCOMPLIANCE [None]
  - TUBERCULOSIS [None]
